FAERS Safety Report 7235002-3 (Version None)
Quarter: 2011Q1

REPORT INFORMATION
  Report Type: 
  Country: None (occurrence: None)
  Receive Date: 20110120
  Receipt Date: 20110110
  Transmission Date: 20110831
  Serious: No
  Sender: FDA-Public Use
  Company Number: US-B.I. PHARMACEUTICALS,INC./RIDGEFIELD-2011-BP-01059BP

PATIENT
  Sex: Male

DRUGS (4)
  1. DIGOXIN [Concomitant]
     Indication: ATRIAL FIBRILLATION
  2. ASA [Concomitant]
     Indication: PROPHYLAXIS
     Dosage: 81 MG
  3. PRADAXA [Suspect]
     Indication: ATRIAL FIBRILLATION
     Dosage: 300 MG
     Route: 048
     Dates: start: 20110103
  4. METOPROLOL [Concomitant]
     Indication: HYPERTENSION

REACTIONS (2)
  - ABDOMINAL PAIN UPPER [None]
  - CHEST DISCOMFORT [None]
